FAERS Safety Report 8295202-0 (Version None)
Quarter: 2012Q2

REPORT INFORMATION
  Report Type: 
  Country: None (occurrence: None)
  Receive Date: 20120418
  Receipt Date: 20120405
  Transmission Date: 20120825
  Serious: Yes (Hospitalization)
  Sender: FDA-Public Use
  Company Number: JP-ROCHE-1046045

PATIENT
  Age: 59 Year
  Sex: Male
  Weight: 65 kg

DRUGS (5)
  1. MARZULENE [Concomitant]
     Route: 048
     Dates: start: 20120211
  2. TAMIFLU [Suspect]
     Indication: ANTIVIRAL PROPHYLAXIS
     Route: 048
     Dates: start: 20120211, end: 20120217
  3. UNASYN [Suspect]
     Indication: INFECTION PROPHYLAXIS
     Route: 042
     Dates: start: 20120214, end: 20120217
  4. LOXOPROFEN SODIUM [Concomitant]
     Indication: PROCEDURAL PAIN
     Route: 048
     Dates: start: 20120211
  5. BISOLVON [Concomitant]
     Indication: PRODUCTIVE COUGH
     Route: 048

REACTIONS (3)
  - URTICARIA [None]
  - THROMBOTIC THROMBOCYTOPENIC PURPURA [None]
  - PLATELET COUNT DECREASED [None]
